FAERS Safety Report 4470060-0 (Version None)
Quarter: 2004Q3

REPORT INFORMATION
  Report Type: 
  Country: None (occurrence: None)
  Receive Date: 20040910
  Receipt Date: 20040616
  Transmission Date: 20050211
  Serious: No
  Sender: FDA-Public Use
  Company Number: 2004219663US

PATIENT
  Sex: Female

DRUGS (2)
  1. BEXTRA [Suspect]
     Indication: OSTEOARTHRITIS
     Dosage: 10 MG, QD
  2. NEURONTIN [Concomitant]

REACTIONS (5)
  - EXOSTOSIS [None]
  - FIBROMYALGIA [None]
  - INTERVERTEBRAL DISC PROTRUSION [None]
  - NERVE INJURY [None]
  - OSTEOARTHRITIS [None]
